FAERS Safety Report 7570690-3 (Version None)
Quarter: 2011Q2

REPORT INFORMATION
  Report Type: 
  Country: None (occurrence: None)
  Receive Date: 20110624
  Receipt Date: 20110505
  Transmission Date: 20111010
  Serious: No
  Sender: FDA-Public Use
  Company Number: US-ALLERGAN-1106202US

PATIENT
  Age: 48 Year
  Sex: Female

DRUGS (1)
  1. LATISSE [Suspect]
     Indication: GROWTH OF EYELASHES
     Dosage: UNK GTT, UNK
     Route: 061
     Dates: start: 20090101

REACTIONS (5)
  - OCULAR VASCULAR DISORDER [None]
  - EYELID SENSORY DISORDER [None]
  - SCLERAL DISCOLOURATION [None]
  - EYELID OEDEMA [None]
  - ABNORMAL SENSATION IN EYE [None]
